FAERS Safety Report 23885103 (Version 1)
Quarter: 2024Q2

REPORT INFORMATION
  Report Type: Spontaneous
  Country: AU (occurrence: AU)
  Receive Date: 20240522
  Receipt Date: 20240522
  Transmission Date: 20240716
  Serious: Yes (Other)
  Sender: FDA-Public Use
  Company Number: AU-SUN PHARMACEUTICAL INDUSTRIES LTD-2024R1-447411

PATIENT
  Age: 76 Year
  Sex: Male

DRUGS (13)
  1. VINCRISTINE [Suspect]
     Active Substance: VINCRISTINE
     Indication: Diffuse large B-cell lymphoma
     Dosage: UNK (MILLIGRAM; INTERVAL: 3 WEEK)
     Route: 042
     Dates: start: 20231106
  2. PREDNISONE [Suspect]
     Active Substance: PREDNISONE
     Indication: Diffuse large B-cell lymphoma
     Dosage: UNK (100 MILLIGRAM; INTERVAL: 1 DAY)
     Route: 048
     Dates: start: 20231106
  3. DOXORUBICIN [Suspect]
     Active Substance: DOXORUBICIN
     Indication: Diffuse large B-cell lymphoma
     Dosage: UNK (86.5 MILLIGRAM; INTERVAL: 3 WEEK)
     Route: 042
     Dates: start: 20231106
  4. EPCORITAMAB [Suspect]
     Active Substance: EPCORITAMAB
     Indication: Diffuse large B-cell lymphoma
     Dosage: UNK
     Route: 065
  5. RITUXIMAB [Suspect]
     Active Substance: RITUXIMAB
     Indication: Diffuse large B-cell lymphoma
     Dosage: UNK (648.75 MILLIGRAM; INTERVAL: 3 WEEK)
     Route: 042
     Dates: start: 20231106
  6. CYCLOPHOSPHAMIDE [Suspect]
     Active Substance: CYCLOPHOSPHAMIDE
     Indication: Diffuse large B-cell lymphoma
     Dosage: UNK (1297.5 MILLIGRAM; INTERVAL: 3 WEEK)
     Route: 042
     Dates: start: 20231106
  7. ASPIRIN [Concomitant]
     Active Substance: ASPIRIN
     Indication: Product used for unknown indication
     Dosage: UNK
     Route: 065
  8. EZETIMIBE [Concomitant]
     Active Substance: EZETIMIBE
     Indication: Hyperlipidaemia
     Dosage: UNK (10 MILLIGRAM; INTERVAL: 1 DAY)
     Route: 048
  9. LORATADINE [Concomitant]
     Active Substance: LORATADINE
     Indication: Antiallergic therapy
     Dosage: UNK (10 MILLIGRAM; INTERVAL: 3 WEEK)
     Route: 048
     Dates: start: 20231106
  10. METOCLOPRAMIDE [Concomitant]
     Active Substance: METOCLOPRAMIDE
     Indication: Prophylaxis of nausea and vomiting
     Dosage: UNK (10 MILLIGRAM)
     Route: 048
     Dates: start: 20231106
  11. MICONAZOLE [Concomitant]
     Active Substance: MICONAZOLE
     Indication: Fungal skin infection
     Dosage: UNK (1 DAY)
     Route: 061
     Dates: start: 20240129
  12. PALONOSETRON [Concomitant]
     Active Substance: PALONOSETRON
     Indication: Prophylaxis of nausea and vomiting
     Dosage: UNK (0.25 MILLIGRAM; INTERVAL: 3 WEEK)
     Route: 042
     Dates: start: 20231106
  13. ACETAMINOPHEN [Concomitant]
     Active Substance: ACETAMINOPHEN
     Indication: Antipyresis
     Dosage: UNK (1000 MILLIGRAM; INTERVAL: 3 WEEK)
     Route: 042
     Dates: start: 20231106

REACTIONS (1)
  - Lower gastrointestinal haemorrhage [Not Recovered/Not Resolved]

NARRATIVE: CASE EVENT DATE: 20240208
